FAERS Safety Report 11055941 (Version 3)
Quarter: 2017Q3

REPORT INFORMATION
  Report Type: Spontaneous
  Country: US (occurrence: US)
  Receive Date: 20150422
  Receipt Date: 20170927
  Transmission Date: 20171127
  Serious: No
  Sender: FDA-Public Use
  Company Number: US-SA-2015SA031945

PATIENT
  Age: 40 Year
  Sex: Male
  Weight: 84.8 kg

DRUGS (2)
  1. LEMTRADA [Suspect]
     Active Substance: ALEMTUZUMAB
     Indication: MULTIPLE SCLEROSIS
     Route: 041
     Dates: start: 20150223, end: 20150303
  2. BENADRYL [Suspect]
     Active Substance: DIPHENHYDRAMINE HYDROCHLORIDE
     Indication: CYTOKINE RELEASE SYNDROME
     Route: 042
     Dates: start: 20150223, end: 20150223

REACTIONS (9)
  - Musculoskeletal stiffness [Unknown]
  - Fatigue [Recovered/Resolved]
  - Rash generalised [Recovered/Resolved]
  - Condition aggravated [Unknown]
  - Inappropriate schedule of drug administration [Unknown]
  - Asthenia [Recovered/Resolved]
  - Dysstasia [Recovered/Resolved]
  - Urticaria [Recovered/Resolved]
  - Muscular weakness [Unknown]

NARRATIVE: CASE EVENT DATE: 20150223
